FAERS Safety Report 7002980-7 (Version None)
Quarter: 2010Q3

REPORT INFORMATION
  Report Type: 
  Country: None (occurrence: None)
  Receive Date: 20100920
  Receipt Date: 20100309
  Transmission Date: 20110219
  Serious: Yes (Other)
  Sender: FDA-Public Use
  Company Number: US-ASTRAZENECA-2009SE28387

PATIENT
  Age: 36 Year
  Sex: Female
  Weight: 106.6 kg

DRUGS (5)
  1. SEROQUEL [Suspect]
     Indication: SCHIZOPHRENIA
     Route: 048
     Dates: start: 20020201
  2. SEROQUEL [Suspect]
     Indication: DEPRESSION
     Route: 048
     Dates: start: 20020201
  3. ABILIFY [Concomitant]
     Dates: start: 20040101
  4. RISPERDAL [Concomitant]
     Dates: start: 20040101
  5. ZYPREXA/SYMBAX [Concomitant]
     Dates: start: 20040101

REACTIONS (6)
  - BACK DISORDER [None]
  - BLOOD CHOLESTEROL INCREASED [None]
  - EXTRAPYRAMIDAL DISORDER [None]
  - HYPERLIPIDAEMIA [None]
  - OBESITY [None]
  - TYPE 2 DIABETES MELLITUS [None]
